FAERS Safety Report 20152123 (Version 1)
Quarter: 2021Q4

REPORT INFORMATION
  Report Type: Spontaneous
  Country: US (occurrence: None)
  Receive Date: 20211205
  Receipt Date: 20211205
  Transmission Date: 20220303
  Serious: No
  Sender: FDA-Public Use
  Company Number: None

PATIENT
  Age: 32 Year
  Sex: Male

DRUGS (1)
  1. CETIRIZINE [Suspect]
     Active Substance: CETIRIZINE HYDROCHLORIDE
     Indication: Hypersensitivity

REACTIONS (3)
  - Pruritus [None]
  - Skin irritation [None]
  - Withdrawal syndrome [None]

NARRATIVE: CASE EVENT DATE: 20211202
